FAERS Safety Report 24020219 (Version 1)
Quarter: 2024Q2

REPORT INFORMATION
  Report Type: Spontaneous
  Country: CA (occurrence: CA)
  Receive Date: 20240627
  Receipt Date: 20240627
  Transmission Date: 20240716
  Serious: Yes (Other)
  Sender: FDA-Public Use
  Company Number: CA-BAXTER-2024BAX020476

PATIENT

DRUGS (2)
  1. ACETAMINOPHEN [Suspect]
     Active Substance: ACETAMINOPHEN
     Indication: Patent ductus arteriosus
     Dosage: 15.0 MG/KG 1 EVERY 6 HOURS (DOSAGE FORM: NOT SPECIFIED), DURATION : 7.0 DAYS
     Route: 065
  2. IBUPROFEN [Suspect]
     Active Substance: IBUPROFEN
     Indication: Patent ductus arteriosus
     Dosage: 20 MG/KG 1 EVERY 24 HOURS (DOSAGE FORM: NOT SPECIFIED)
     Route: 065

REACTIONS (1)
  - Thrombocytopenia [Unknown]
